FAERS Safety Report 5788807-X (Version None)
Quarter: 2008Q2

REPORT INFORMATION
  Report Type: 
  Country: None (occurrence: None)
  Receive Date: 20080618
  Receipt Date: 20071206
  Transmission Date: 20081010
  Serious: Yes (Other)
  Sender: FDA-Public Use
  Company Number: 200718535US

PATIENT
  Age: 61 Year
  Sex: Male

DRUGS (1)
  1. INSULIN GLLAARGINE (LANTUS) [Suspect]

REACTIONS (2)
  - HYPOGLYCAEMIC SEIZURE [None]
  - INJECTION SITE HAEMORRHAGE [None]
